FAERS Safety Report 15253976 (Version 6)
Quarter: 2018Q3

REPORT INFORMATION
  Report Type: Spontaneous
  Country: CA (occurrence: CA)
  Receive Date: 20180808
  Receipt Date: 20180928
  Transmission Date: 20181010
  Serious: Yes (Hospitalization)
  Sender: FDA-Public Use
  Company Number: CA-CELLTRION INC.-2018CA021799

PATIENT

DRUGS (12)
  1. VITAMIN D                          /00107901/ [Concomitant]
     Active Substance: ERGOCALCIFEROL
     Dosage: UNK
  2. INFLECTRA [Suspect]
     Active Substance: INFLIXIMAB-DYYB
     Dosage: 400 MG, CYCLIC (800 MG WEEK 0, 400 MG EVERY 2, 6 WEEKS, THEN EVERY 8 WEEKS)
     Route: 042
     Dates: start: 20180703
  3. INFLECTRA [Suspect]
     Active Substance: INFLIXIMAB-DYYB
     Dosage: 400 MG, CYCLIC (800 MG WEEK 0, 400 MG EVERY 2, 6 WEEKS, THEN EVERY 8 WEEKS)
     Route: 042
     Dates: start: 20180820
  4. OMEPRAZOL                          /00661201/ [Concomitant]
     Active Substance: OMEPRAZOLE
     Dosage: UNK
  5. PREDNISONE. [Concomitant]
     Active Substance: PREDNISONE
     Dosage: UNK
     Dates: start: 20180607
  6. CALCIUM CARBONATE. [Concomitant]
     Active Substance: CALCIUM CARBONATE
     Dosage: UNK
  7. INFLECTRA [Suspect]
     Active Substance: INFLIXIMAB-DYYB
     Indication: COLITIS ULCERATIVE
     Dosage: 800 MG CYCLIC WEEK 0; 400 MG EVERY 2, 6 WEEKS, THEN EVERY 8 WEEKS
     Route: 042
     Dates: start: 20180618
  8. INFLECTRA [Suspect]
     Active Substance: INFLIXIMAB-DYYB
     Dosage: 800 MG CYCLIC (WEEK 0; 400 MG EVERY 2, 6 WEEKS THEN EVERY 8 WEEKS);
     Route: 042
     Dates: start: 20180722
  9. SOLU?MEDROL [Concomitant]
     Active Substance: METHYLPREDNISOLONE SODIUM SUCCINATE
     Dosage: UNK
     Dates: start: 20180614, end: 20180616
  10. IRON [Concomitant]
     Active Substance: IRON
     Dosage: UNK
  11. TYLENOL [Concomitant]
     Active Substance: ACETAMINOPHEN
     Dosage: UNK
  12. PREGVIT [Concomitant]
     Dosage: UNK

REACTIONS (3)
  - Condition aggravated [Recovering/Resolving]
  - Haemoglobin increased [Not Recovered/Not Resolved]
  - Product use issue [Unknown]
